FAERS Safety Report 5909537-7 (Version None)
Quarter: 2008Q4

REPORT INFORMATION
  Report Type: 
  Country: None (occurrence: None)
  Receive Date: 20081002
  Receipt Date: 20080922
  Transmission Date: 20090506
  Serious: No
  Sender: FDA-Public Use
  Company Number: 2008SP016645

PATIENT
  Age: 15 Year
  Sex: Female

DRUGS (2)
  1. DESLORATADINE [Suspect]
     Indication: DRUG HYPERSENSITIVITY
     Dosage: 1 DF; QD;
     Dates: start: 20080806, end: 20080811
  2. DEXAMETHASONE [Concomitant]

REACTIONS (1)
  - DRUG INEFFECTIVE [None]
